FAERS Safety Report 17261915 (Version 4)
Quarter: 2020Q2

REPORT INFORMATION
  Report Type: Report from Study
  Country: None (occurrence: CA)
  Receive Date: 20200113
  Receipt Date: 20200526
  Transmission Date: 20200713
  Serious: Yes (Other)
  Sender: FDA-Public Use
  Company Number: CA-ABBVIE-19K-028-2853586-00

PATIENT
  Age: 62 Year
  Sex: Female
  Weight: 47.1 kg

DRUGS (2)
  1. HUMIRA [Suspect]
     Active Substance: ADALIMUMAB
     Route: 058
     Dates: start: 20200213, end: 2020
  2. HUMIRA [Suspect]
     Active Substance: ADALIMUMAB
     Indication: CROHN^S DISEASE
     Route: 058
     Dates: start: 20190412, end: 20200101

REACTIONS (14)
  - Weight decreased [Unknown]
  - Abdominal distension [Unknown]
  - Anal incontinence [Not Recovered/Not Resolved]
  - Fatigue [Unknown]
  - Large intestinal obstruction [Not Recovered/Not Resolved]
  - Diarrhoea [Not Recovered/Not Resolved]
  - Drug ineffective [Not Recovered/Not Resolved]
  - Diarrhoea [Not Recovered/Not Resolved]
  - Abdominal discomfort [Unknown]
  - Malaise [Unknown]
  - Abdominal distension [Recovered/Resolved]
  - Abdominal distension [Unknown]
  - Abdominal mass [Unknown]
  - Large intestinal stenosis [Not Recovered/Not Resolved]

NARRATIVE: CASE EVENT DATE: 2019
